FAERS Safety Report 20345966 (Version 12)
Quarter: 2023Q2

REPORT INFORMATION
  Report Type: Report from Study
  Country: US (occurrence: US)
  Receive Date: 20220118
  Receipt Date: 20230522
  Transmission Date: 20230721
  Serious: Yes (Hospitalization)
  Sender: FDA-Public Use
  Company Number: US-NOVARTISTESTPH-NVSC2022US009411

PATIENT
  Age: 46 Year
  Sex: Female
  Weight: 88.435 kg

DRUGS (11)
  1. TREPROSTINIL [Suspect]
     Active Substance: TREPROSTINIL
     Indication: Pulmonary arterial hypertension
     Dosage: 120 NG/KG/MIN, CONT
     Route: 042
     Dates: start: 20211201
  2. TREPROSTINIL [Suspect]
     Active Substance: TREPROSTINIL
     Dosage: 380 NG/KG/MIN, CONT (STRENGTH 10 MG/ML)
     Route: 042
  3. TREPROSTINIL [Suspect]
     Active Substance: TREPROSTINIL
     Dosage: 120 NG/KG/MIN, CONT
     Route: 042
  4. TREPROSTINIL [Suspect]
     Active Substance: TREPROSTINIL
     Dosage: 156 NG/KG/MIN, CONT
     Route: 042
  5. TREPROSTINIL [Suspect]
     Active Substance: TREPROSTINIL
     Dosage: 186 NG/KG/MIN, CONT
     Route: 042
  6. TREPROSTINIL [Suspect]
     Active Substance: TREPROSTINIL
     Dosage: 200 NG/KG/MIN, CONT
     Route: 042
  7. TREPROSTINIL [Suspect]
     Active Substance: TREPROSTINIL
     Dosage: 342 NG/KG/MIN, CONT
     Route: 042
  8. TREPROSTINIL [Suspect]
     Active Substance: TREPROSTINIL
     Dosage: 342 NG/KG/MIN, CONT
     Route: 042
  9. BOSENTAN [Concomitant]
     Active Substance: BOSENTAN
     Indication: Product used for unknown indication
     Dosage: UNK
     Route: 065
  10. COUMADIN [Concomitant]
     Active Substance: WARFARIN SODIUM
     Indication: Product used for unknown indication
     Dosage: UNK
     Route: 065
  11. SILDENAFIL CITRATE [Concomitant]
     Active Substance: SILDENAFIL CITRATE
     Indication: Product used for unknown indication
     Dosage: UNK
     Route: 065

REACTIONS (15)
  - Oxygen saturation decreased [Unknown]
  - Heavy menstrual bleeding [Recovered/Resolved]
  - Haemorrhage [Unknown]
  - Syncope [Unknown]
  - Dyspnoea [Recovered/Resolved]
  - Feeling abnormal [Unknown]
  - Palpitations [Unknown]
  - Malaise [Unknown]
  - Haemoglobin decreased [Unknown]
  - Flushing [Unknown]
  - Ejection fraction decreased [Unknown]
  - Blood potassium decreased [Unknown]
  - Pulmonary arterial pressure increased [Unknown]
  - Pallor [Recovered/Resolved]
  - Diarrhoea [Recovered/Resolved]

NARRATIVE: CASE EVENT DATE: 20220712
